FAERS Safety Report 11415227 (Version 1)
Quarter: 2015Q3

REPORT INFORMATION
  Report Type: Spontaneous
  Country: US (occurrence: US)
  Receive Date: 20150825
  Receipt Date: 20150825
  Transmission Date: 20151125
  Serious: Yes (Other)
  Sender: FDA-Public Use
  Company Number: US-SUN PHARMACEUTICAL INDUSTRIES LTD-2015US-101988

PATIENT
  Age: 44 Year
  Sex: Female
  Weight: 90 kg

DRUGS (6)
  1. OXYCODEINE [Concomitant]
     Indication: PAIN
     Dosage: UNK
     Route: 065
     Dates: start: 2015
  2. LISINOPRIL HCTZ [Concomitant]
     Active Substance: HYDROCHLOROTHIAZIDE\LISINOPRIL
     Indication: HYPERTENSION
     Dosage: UNK
     Route: 065
  3. TRAMADOL. [Suspect]
     Active Substance: TRAMADOL
     Indication: ANALGESIC THERAPY
     Dosage: 3 DF, QD
     Route: 048
  4. XELJANZ [Suspect]
     Active Substance: TOFACITINIB CITRATE
     Indication: RHEUMATOID ARTHRITIS
     Dosage: 5 MG, BID
     Route: 048
  5. METHOTREXATE [Suspect]
     Active Substance: METHOTREXATE
     Indication: ARTHRITIS
     Dosage: UNK
     Route: 051
  6. FOLIC ACID. [Concomitant]
     Active Substance: FOLIC ACID
     Indication: PRODUCT USED FOR UNKNOWN INDICATION
     Dosage: 1 DF, QD
     Route: 048

REACTIONS (11)
  - Fungal infection [Unknown]
  - Condition aggravated [Unknown]
  - Injection site pain [Unknown]
  - Feeling abnormal [Unknown]
  - Sinus disorder [Unknown]
  - Infection [Unknown]
  - Drug ineffective [Unknown]
  - Nasopharyngitis [Unknown]
  - Malaise [Unknown]
  - Treatment noncompliance [Unknown]
  - Immunodeficiency [Unknown]
